FAERS Safety Report 25380746 (Version 1)
Quarter: 2025Q2

REPORT INFORMATION
  Report Type: Spontaneous
  Country: US (occurrence: None)
  Receive Date: 20250530
  Receipt Date: 20250530
  Transmission Date: 20250717
  Serious: Yes (Disabling)
  Sender: FDA-CTU
  Company Number: None

PATIENT
  Age: 26 Year
  Sex: Male
  Weight: 76.5 kg

DRUGS (3)
  1. .DELTA.8-TETRAHYDROCANNABINOL\HERBALS [Suspect]
     Active Substance: .DELTA.8-TETRAHYDROCANNABINOL\HERBALS
     Indication: Substance use
  2. .DELTA.9-TETRAHYDROCANNABINOL\HERBALS\NICOTINE [Suspect]
     Active Substance: .DELTA.9-TETRAHYDROCANNABINOL\HERBALS\NICOTINE
  3. PRILOSEC [Concomitant]
     Active Substance: OMEPRAZOLE MAGNESIUM

REACTIONS (5)
  - Panic attack [None]
  - Depersonalisation/derealisation disorder [None]
  - Post-traumatic epilepsy [None]
  - Anxiety [None]
  - Sleep terror [None]

NARRATIVE: CASE EVENT DATE: 20220315
